FAERS Safety Report 19929101 (Version 1)
Quarter: 2021Q4

REPORT INFORMATION
  Report Type: Report from Study
  Country: US (occurrence: US)
  Receive Date: 20211007
  Receipt Date: 20211007
  Transmission Date: 20220303
  Serious: Yes (Hospitalization)
  Sender: FDA-Public Use
  Company Number: US-XGEN PHARMACEUTICALS DJB, INC.-2120302

PATIENT
  Age: 70 Year
  Sex: Female

DRUGS (1)
  1. POLYMYXIN B [Suspect]
     Active Substance: POLYMYXIN B

REACTIONS (1)
  - Rhabdomyolysis [Recovered/Resolved]
